FAERS Safety Report 21772122 (Version 1)
Quarter: 2022Q4

REPORT INFORMATION
  Report Type: Spontaneous
  Country: US (occurrence: US)
  Receive Date: 20221223
  Receipt Date: 20221223
  Transmission Date: 20230112
  Serious: No
  Sender: FDA-Public Use
  Company Number: US-CTI BIOPHARMA-2022US03102

PATIENT

DRUGS (13)
  1. VONJO [Suspect]
     Active Substance: PACRITINIB
     Indication: Myeloproliferative neoplasm
     Dosage: 200 MG, BID
     Route: 048
     Dates: start: 20220412
  2. ARANESP [Concomitant]
     Active Substance: DARBEPOETIN ALFA
  3. ATORVASTATIN [Concomitant]
     Active Substance: ATORVASTATIN
  4. ISOSORBIDE MONONITRATE [Concomitant]
     Active Substance: ISOSORBIDE MONONITRATE
  5. FUROSEMIDE [Concomitant]
     Active Substance: FUROSEMIDE
  6. LEVAQUIN [Concomitant]
     Active Substance: LEVOFLOXACIN
  7. METOPROLOL [Concomitant]
     Active Substance: METOPROLOL
  8. NEXIUM I.V. [Concomitant]
     Active Substance: ESOMEPRAZOLE SODIUM
  9. NORVASC [Concomitant]
     Active Substance: AMLODIPINE BESYLATE
  10. PEPCID [Concomitant]
     Active Substance: FAMOTIDINE
  11. VALACYCLOVIR HYDROCHLORIDE [Concomitant]
     Active Substance: VALACYCLOVIR HYDROCHLORIDE
  12. VITAMIN B1 [Concomitant]
     Active Substance: THIAMINE HYDROCHLORIDE
  13. ZYRTEC [Concomitant]
     Active Substance: CETIRIZINE HYDROCHLORIDE

REACTIONS (1)
  - Angina pectoris [Unknown]
